FAERS Safety Report 20542035 (Version 1)
Quarter: 2022Q1

REPORT INFORMATION
  Report Type: Spontaneous
  Country: CA (occurrence: CA)
  Receive Date: 20220302
  Receipt Date: 20220302
  Transmission Date: 20220423
  Serious: Yes (Other)
  Sender: FDA-Public Use
  Company Number: CA-JNJFOC-20211160310

PATIENT
  Age: 22 Year
  Sex: Male

DRUGS (4)
  1. REMICADE [Suspect]
     Active Substance: INFLIXIMAB
     Indication: Crohn^s disease
     Route: 042
  2. METHOTREXATE [Suspect]
     Active Substance: METHOTREXATE
     Indication: Product used for unknown indication
  3. ERGOCALCIFEROL [Concomitant]
     Active Substance: ERGOCALCIFEROL
  4. FOLIC ACID [Concomitant]
     Active Substance: FOLIC ACID

REACTIONS (6)
  - Decreased appetite [Not Recovered/Not Resolved]
  - Anal fissure [Not Recovered/Not Resolved]
  - Asthenia [Not Recovered/Not Resolved]
  - Anal abscess [Not Recovered/Not Resolved]
  - Constipation [Not Recovered/Not Resolved]
  - Fatigue [Not Recovered/Not Resolved]
